FAERS Safety Report 23511136 (Version 1)
Quarter: 2024Q1

REPORT INFORMATION
  Report Type: Spontaneous
  Country: US (occurrence: US)
  Receive Date: 20240212
  Receipt Date: 20240212
  Transmission Date: 20240410
  Serious: No
  Sender: FDA-Public Use
  Company Number: US-AIMMUNE THERAPEUTICS, INC.-2023AIMT01123

PATIENT

DRUGS (6)
  1. PALFORZIA [Suspect]
     Active Substance: PEANUT
     Indication: Food allergy
     Dosage: IDE (0.5MG-6MG), ONCE
     Route: 048
  2. PALFORZIA [Suspect]
     Active Substance: PEANUT
     Dosage: 20 MG, 1X/DAY
     Route: 048
     Dates: start: 20230927, end: 20230927
  3. PALFORZIA [Suspect]
     Active Substance: PEANUT
     Dosage: 20 MG, ONCE, LAST DOSE PRIOR TO EVENT ONSET
     Route: 048
  4. PALFORZIA [Suspect]
     Active Substance: PEANUT
     Dosage: 40 MG, 1X/DAY
     Route: 048
     Dates: start: 20230927
  5. EPIPEN [Concomitant]
     Active Substance: EPINEPHRINE
     Indication: Product used for unknown indication
     Dosage: 0.3 MG
  6. LORATADINE [Concomitant]
     Active Substance: LORATADINE
     Indication: Product used for unknown indication
     Dosage: 10 MG

REACTIONS (1)
  - Pharyngitis streptococcal [Recovered/Resolved]
